FAERS Safety Report 7808672-6 (Version None)
Quarter: 2011Q4

REPORT INFORMATION
  Report Type: 
  Country: None (occurrence: None)
  Receive Date: 20111012
  Receipt Date: 20111003
  Transmission Date: 20120403
  Serious: Yes (Disabling, Other)
  Sender: FDA-Public Use
  Company Number: DE-TEVA-304408GER

PATIENT
  Sex: Female

DRUGS (1)
  1. VINCRISTINE [Suspect]
     Indication: CHEMOTHERAPY

REACTIONS (5)
  - IMPAIRED WORK ABILITY [None]
  - MEMORY IMPAIRMENT [None]
  - DISTURBANCE IN ATTENTION [None]
  - SLEEP DISORDER [None]
  - NIGHTMARE [None]
